FAERS Safety Report 8121754-7 (Version None)
Quarter: 2012Q1

REPORT INFORMATION
  Report Type: 
  Country: None (occurrence: None)
  Receive Date: 20120208
  Receipt Date: 20120126
  Transmission Date: 20120608
  Serious: Yes (Hospitalization)
  Sender: FDA-Public Use
  Company Number: US-UCBSA-030969

PATIENT
  Age: 23 Year
  Sex: Male
  Weight: 47.62 kg

DRUGS (14)
  1. CERTOLIZUMAB PEGOL [Suspect]
     Indication: CROHN'S DISEASE
     Route: 058
     Dates: start: 20100326
  2. VITAMIN D [Concomitant]
  3. MERCAPTOPURINE [Concomitant]
     Dosage: DAILY
     Route: 048
     Dates: start: 20100401
  4. ASCORBIC ACID [Concomitant]
  5. CERTOLIZUMAB PEGOL [Suspect]
     Route: 058
     Dates: start: 20110121
  6. CERTOLIZUMAB PEGOL [Suspect]
     Route: 058
     Dates: start: 20110225
  7. CERTOLIZUMAB PEGOL [Suspect]
     Route: 058
     Dates: start: 20110405
  8. CERTOLIZUMAB PEGOL [Suspect]
     Route: 058
     Dates: start: 20100629, end: 20101213
  9. CERTOLIZUMAB PEGOL [Suspect]
     Route: 058
     Dates: start: 20110114
  10. CLONAZEPAM [Concomitant]
     Route: 048
  11. PREDNISONE [Concomitant]
     Indication: CROHN'S DISEASE
     Dosage: DAILY; 5MG 2 TABLETS DAILY X 4 DAYS, THEN 1 TABLET UNTIL SEEN BY DOCTOR
     Dates: start: 20091001, end: 20110221
  12. MERCAPTOPURINE [Concomitant]
     Dosage: DAILY
  13. PERCOCET [Concomitant]
     Indication: PAIN
     Dosage: 5/325MG 1-2 TABLETS; Q4H
     Route: 048
  14. LEVAQUIN [Concomitant]

REACTIONS (2)
  - DEHYDRATION [None]
  - PNEUMONIA [None]
